FAERS Safety Report 7450949-0 (Version None)
Quarter: 2011Q2

REPORT INFORMATION
  Report Type: 
  Country: None (occurrence: None)
  Receive Date: 20110429
  Receipt Date: 20110429
  Transmission Date: 20111010
  Serious: Yes (Life-Threatening, Disabling)
  Sender: FDA-Public Use
  Company Number: None

PATIENT
  Age: 50 Year
  Sex: Male
  Weight: 85 kg

DRUGS (13)
  1. LACTULOSE [Concomitant]
  2. BACTRIM DS? [Concomitant]
  3. ZOMETA? [Concomitant]
  4. OXYCODONE [Concomitant]
  5. VALIUM? -DIAZEPAM- [Concomitant]
  6. NEXIUM? -ESOMEPRAZOLE- [Concomitant]
  7. MEGACE? -MEGESTROL- [Concomitant]
  8. PREDNISONE [Concomitant]
  9. ZOFRAN ODT? [Concomitant]
  10. COLACE? -DOCUSATE SODIUM- [Concomitant]
  11. AFINITOR [Suspect]
     Indication: METASTATIC RENAL CELL CARCINOMA
     Dosage: 10 MG DAILY PO
     Route: 048
     Dates: start: 20101005, end: 20101218
  12. AVINZA? [Concomitant]
  13. CENTRUM? [Concomitant]

REACTIONS (15)
  - WOUND [None]
  - PLEURAL FIBROSIS [None]
  - LUNG NEOPLASM [None]
  - RADIATION INJURY [None]
  - LUNG INFILTRATION [None]
  - IMPAIRED HEALING [None]
  - WHEEZING [None]
  - OXYGEN SATURATION DECREASED [None]
  - DYSPNOEA [None]
  - RHONCHI [None]
  - DRUG INTOLERANCE [None]
  - FATIGUE [None]
  - PNEUMONITIS [None]
  - SUPERINFECTION [None]
  - BACK PAIN [None]
